FAERS Safety Report 10749905 (Version 2)
Quarter: 2015Q2

REPORT INFORMATION
  Report Type: Spontaneous
  Country: US (occurrence: US)
  Receive Date: 20150129
  Receipt Date: 20150602
  Transmission Date: 20150821
  Serious: No
  Sender: FDA-Public Use
  Company Number: US-GLAXOSMITHKLINE-US2014GSK048837

PATIENT
  Sex: Female

DRUGS (1)
  1. TYKERB [Suspect]
     Active Substance: LAPATINIB DITOSYLATE
     Indication: BREAST CANCER FEMALE
     Dosage: 1250 MG, QD
     Dates: start: 20140917

REACTIONS (5)
  - Nail discolouration [Unknown]
  - Drug dose omission [Unknown]
  - Onychomadesis [Unknown]
  - Headache [Unknown]
  - Diarrhoea [Unknown]
